FAERS Safety Report 9313364 (Version 1)
Quarter: 2013Q2

REPORT INFORMATION
  Report Type: Spontaneous
  Country: US (occurrence: US)
  Receive Date: 20130528
  Receipt Date: 20130528
  Transmission Date: 20140414
  Serious: No
  Sender: FDA-Public Use
  Company Number: US-ABBOTT-13P-163-1056292-00

PATIENT
  Age: 56 Year
  Sex: Male
  Weight: 113.5 kg

DRUGS (2)
  1. ANDROGEL 1.62% [Suspect]
     Indication: BLOOD TESTOSTERONE DECREASED
     Route: 061
     Dates: start: 201301, end: 20130220
  2. ANDROGEL 1.62% [Suspect]
     Dosage: 3 PUMPS STARTED ONE WEEK AGO
     Route: 061
     Dates: start: 20130220

REACTIONS (1)
  - Blood testosterone free decreased [Not Recovered/Not Resolved]
